FAERS Safety Report 16984939 (Version 1)
Quarter: 2019Q4

REPORT INFORMATION
  Report Type: Spontaneous
  Country: US (occurrence: US)
  Receive Date: 20191101
  Receipt Date: 20191101
  Transmission Date: 20200122
  Serious: Yes (Death, Other)
  Sender: FDA-Public Use
  Company Number: US-AMGEN-USASP2019180803

PATIENT

DRUGS (7)
  1. POMALIDOMIDE [Suspect]
     Active Substance: POMALIDOMIDE
     Indication: PLASMA CELL MYELOMA
     Dosage: 3 MILLIGRAM, QD; ON DAYS 1-21
     Route: 048
  2. CARFILZOMIB [Suspect]
     Active Substance: CARFILZOMIB
     Indication: PLASMA CELL MYELOMA
     Dosage: 20 MILLIGRAM/SQ. METER; DAY 1, CYCLE 1
     Route: 042
  3. DEXAMETHASONE. [Suspect]
     Active Substance: DEXAMETHASONE
     Dosage: 8 MILLIGRAM
     Route: 042
  4. CARFILZOMIB [Suspect]
     Active Substance: CARFILZOMIB
     Dosage: 56 MILLIGRAM/SQ. METER; DAYS 8 AND 15 OF CYCLE 1 AND DAYS 1, 8 AND 15 ON CYCLE 2 AND BEYOND
     Route: 042
  5. ELOTUZUMAB. [Suspect]
     Active Substance: ELOTUZUMAB
     Indication: PLASMA CELL MYELOMA
     Dosage: 10 MILLIGRAM/KILOGRAM; ON DAYS 1, 8,15, AND 22 DURING CYCLES 1 AND 2
     Route: 042
  6. DEXAMETHASONE. [Suspect]
     Active Substance: DEXAMETHASONE
     Indication: PLASMA CELL MYELOMA
     Dosage: 28 MILLIGRAM
     Route: 048
  7. ELOTUZUMAB. [Suspect]
     Active Substance: ELOTUZUMAB
     Dosage: 10 MILLIGRAM/KILOGRAM; ON DAY 1 ; ON AND BEYOND CYCLE 3
     Route: 042

REACTIONS (6)
  - Sepsis [Unknown]
  - Leukopenia [Unknown]
  - Hypophosphataemia [Unknown]
  - Plasma cell myeloma [Unknown]
  - Encephalopathy [Unknown]
  - Death [Fatal]
